FAERS Safety Report 23013670 (Version 1)
Quarter: 2023Q4

REPORT INFORMATION
  Report Type: Spontaneous
  Country: GB (occurrence: GB)
  Receive Date: 20231001
  Receipt Date: 20231001
  Transmission Date: 20240109
  Serious: Yes (Other)
  Sender: FDA-Public Use
  Company Number: None

PATIENT
  Age: 52 Year
  Sex: Female
  Weight: 107 kg

DRUGS (36)
  1. PROMETHAZINE HYDROCHLORIDE [Suspect]
     Active Substance: PROMETHAZINE HYDROCHLORIDE
     Indication: Product used for unknown indication
     Route: 048
     Dates: start: 20230911
  2. AMOXICILLIN [Concomitant]
     Active Substance: AMOXICILLIN
     Indication: Ill-defined disorder
     Dosage: 3 DOSAGE FORMS DAILY;
     Dates: start: 20230623, end: 20230628
  3. ARIPIPRAZOLE [Concomitant]
     Active Substance: ARIPIPRAZOLE
     Indication: Ill-defined disorder
     Dosage: 5 MG,
     Dates: start: 20230906, end: 20230918
  4. BETAMETHASONE DIPROPIONATE [Concomitant]
     Active Substance: BETAMETHASONE DIPROPIONATE
     Indication: Ill-defined disorder
     Dosage: POTENT STEROID/SALICYLIC ACID SCALP APPLICATION,
     Dates: start: 20230830, end: 20230913
  5. BETAMETHASONE VALERATE [Concomitant]
     Active Substance: BETAMETHASONE VALERATE
     Indication: Ill-defined disorder
     Dosage: APPLY SPARINGLY TO THE SCALP
     Dates: start: 20230810
  6. CHLORHEXIDINE GLUCONATE [Concomitant]
     Active Substance: CHLORHEXIDINE GLUCONATE
     Indication: Ill-defined disorder
     Dosage: USE TO WASH AROUND VULVAL AREA,
     Dates: start: 20230830, end: 20230906
  7. DOCUSATE SODIUM [Concomitant]
     Active Substance: DOCUSATE SODIUM
     Indication: Ill-defined disorder
     Dosage: 2 DOSAGE FORMS DAILY;  WHEN REQUIRED
     Dates: start: 20230629
  8. DOCUSATE SODIUM [Concomitant]
     Active Substance: DOCUSATE SODIUM
     Indication: Constipation
  9. DOXYCYCLINE [Concomitant]
     Active Substance: DOXYCYCLINE
     Indication: Ill-defined disorder
     Dosage: 2 DOSAGE FORMS DAILY;
     Dates: start: 20230906, end: 20230913
  10. FENBID [Concomitant]
     Indication: Ill-defined disorder
     Dosage: APPLY TO AFFECTED AREA(S) AND LIGHTLY RUB IN UN...
     Dates: start: 20230420
  11. FEXOFENADINE [Concomitant]
     Active Substance: FEXOFENADINE HYDROCHLORIDE
     Indication: Ill-defined disorder
     Dosage: 1 DOSAGE FORMS DAILY;
     Dates: start: 20230524
  12. FEXOFENADINE [Concomitant]
     Active Substance: FEXOFENADINE HYDROCHLORIDE
     Indication: Hypersensitivity
  13. FLUCLOXACILLIN [Concomitant]
     Active Substance: FLUCLOXACILLIN
     Indication: Ill-defined disorder
     Dosage: 4 DOSAGE FORMS DAILY;
     Dates: start: 20230911, end: 20230918
  14. FLUOXETINE [Concomitant]
     Active Substance: FLUOXETINE HYDROCHLORIDE
     Indication: Ill-defined disorder
     Dosage: 2 DOSAGE FORMS DAILY;
     Dates: start: 20230502
  15. FLUTICASONE FUROATE [Concomitant]
     Active Substance: FLUTICASONE FUROATE
     Indication: Ill-defined disorder
     Dosage: 2 DOSAGE FORMS DAILY; USE ONE SPRAY IN BOTH NOSTRILS ONCE DAILY (CAN ...
     Route: 045
     Dates: start: 20230524
  16. BECLOMETHASONE\FORMOTEROL [Concomitant]
     Active Substance: BECLOMETHASONE\FORMOTEROL
     Indication: Ill-defined disorder
     Dosage: 2 DOSAGE FORMS DAILY; AND EXTRA PUFF AS REQUIRED M...
     Route: 055
     Dates: start: 20230524
  17. FUSIDIC ACID [Concomitant]
     Active Substance: FUSIDIC ACID
     Indication: Ill-defined disorder
     Dosage: APPLY TO AFFECTED AREA(S) ...
     Dates: start: 20230916
  18. POTASSIUM BICARBONATE\SODIUM ALGINATE [Concomitant]
     Active Substance: POTASSIUM BICARBONATE\SODIUM ALGINATE
     Indication: Ill-defined disorder
     Dosage: 40 ML DAILY;
     Dates: start: 20221103
  19. HYDROCORTISONE [Concomitant]
     Active Substance: HYDROCORTISONE
     Indication: Ill-defined disorder
     Dosage: APPLY
     Dates: start: 20230911, end: 20230918
  20. KETOCONAZOLE [Concomitant]
     Active Substance: KETOCONAZOLE
     Indication: Ill-defined disorder
     Dosage: FOR FLARES FOR 2-4 WEEKS, THEN...
     Dates: start: 20230823
  21. MACROGOL COMPOUND [Concomitant]
     Indication: Ill-defined disorder
     Dosage: MIX ONE TO THREE SACHETS IN WATER ONCE DAILY (ADJUST DOSE TO PRODUCE REGU,
     Dates: start: 20230714, end: 20230901
  22. MACROGOL COMPOUND [Concomitant]
     Indication: Constipation
  23. MOMETASONE [Concomitant]
     Active Substance: MOMETASONE
     Indication: Ill-defined disorder
     Dosage: ADULTS AND CHILDREN } 12 YEARS;  USE TWO SPRAYS,
     Dates: start: 20230705, end: 20230830
  24. MONTELUKAST [Concomitant]
     Active Substance: MONTELUKAST SODIUM
     Indication: Ill-defined disorder
     Dosage: 1 DOSAGE FORMS DAILY;  AT NIGHT
     Dates: start: 20230524
  25. NITROFURANTOIN [Concomitant]
     Active Substance: NITROFURANTOIN
     Indication: Ill-defined disorder
     Dosage: 2 DOSAGE FORMS DAILY;
     Dates: start: 20230712, end: 20230719
  26. OMEPRAZOLE [Concomitant]
     Active Substance: OMEPRAZOLE
     Indication: Ill-defined disorder
     Dosage: 2 DOSAGE FORMS DAILY;
     Dates: start: 20221103
  27. OTOMIZE [Concomitant]
     Indication: Ill-defined disorder
     Dosage: INTO THE AFFECTED EAR(S)
     Route: 001
     Dates: start: 20230705, end: 20230802
  28. PREDNISOLONE [Concomitant]
     Active Substance: PREDNISOLONE
     Indication: Ill-defined disorder
     Dosage: 8 DOSAGE FORMS DAILY; EACH MORNING
     Dates: start: 20230718, end: 20230725
  29. RAMIPRIL [Concomitant]
     Active Substance: RAMIPRIL
     Indication: Ill-defined disorder
     Dosage: 1 DOSAGE FORMS DAILY;
     Dates: start: 20230330
  30. RISPERIDONE [Concomitant]
     Active Substance: RISPERIDONE
     Indication: Ill-defined disorder
     Dosage: 2 DOSAGE FORMS DAILY;
     Dates: start: 20230418
  31. SENNA [Concomitant]
     Active Substance: SENNA LEAF\SENNOSIDES\SENNOSIDES A AND B
     Indication: Ill-defined disorder
     Dosage: 2 DOSAGE FORMS DAILY;  AT NIGHT
     Dates: start: 20221103
  32. SENNA [Concomitant]
     Active Substance: SENNA LEAF\SENNOSIDES\SENNOSIDES A AND B
     Indication: Constipation
  33. SPIRIVA [Concomitant]
     Active Substance: TIOTROPIUM BROMIDE MONOHYDRATE
     Indication: Ill-defined disorder
     Dosage: 2 DOSAGE FORMS DAILY; INHALE
     Route: 055
     Dates: start: 20230629
  34. SPIRIVA [Concomitant]
     Active Substance: TIOTROPIUM BROMIDE MONOHYDRATE
     Indication: Dyspnoea
  35. VENTOLIN [Concomitant]
     Active Substance: ALBUTEROL SULFATE
     Indication: Ill-defined disorder
     Dosage: INHALE ONE OR TWO DOSES WHEN REQUIRED TO RELIEV...
     Route: 055
     Dates: start: 20230614
  36. ZOPICLONE [Concomitant]
     Active Substance: ZOPICLONE
     Indication: Ill-defined disorder
     Dosage: 3.75 MG
     Dates: start: 20230517

REACTIONS (3)
  - Malaise [Unknown]
  - Nightmare [Recovered/Resolved]
  - Illness [Recovered/Resolved]
